FAERS Safety Report 19819959 (Version 4)
Quarter: 2022Q3

REPORT INFORMATION
  Report Type: Report from Study
  Country: JP (occurrence: JP)
  Receive Date: 20210913
  Receipt Date: 20220713
  Transmission Date: 20221027
  Serious: Yes (Life-Threatening)
  Sender: FDA-Public Use
  Company Number: JP-CELLTRION INC.-2021JP012219

PATIENT

DRUGS (17)
  1. INVESTIGATIONAL BIOSIMILARS [Suspect]
     Active Substance: INVESTIGATIONAL BIOSIMILARS
     Indication: HER2 positive gastric cancer
     Dosage: 437 MG, QD
     Route: 041
     Dates: start: 20210317, end: 20210317
  2. INVESTIGATIONAL BIOSIMILARS [Suspect]
     Active Substance: INVESTIGATIONAL BIOSIMILARS
     Dosage: 320 MILLIGRAM, QD
     Route: 041
     Dates: start: 20210407, end: 20210407
  3. INVESTIGATIONAL BIOSIMILARS [Suspect]
     Active Substance: INVESTIGATIONAL BIOSIMILARS
     Dosage: 320 MILLIGRAM, QD
     Route: 041
     Dates: start: 20210428, end: 20210428
  4. INVESTIGATIONAL BIOSIMILARS [Suspect]
     Active Substance: INVESTIGATIONAL BIOSIMILARS
     Dosage: 320 MILLIGRAM, QD
     Route: 041
     Dates: start: 20210602, end: 20210602
  5. INVESTIGATIONAL BIOSIMILARS [Suspect]
     Active Substance: INVESTIGATIONAL BIOSIMILARS
     Dosage: 320 MG, QD
     Route: 041
     Dates: start: 20210714, end: 20210714
  6. GIMERACIL\OTERACIL\TEGAFUR [Suspect]
     Active Substance: GIMERACIL\OTERACIL\TEGAFUR
     Indication: HER2 positive gastric cancer
     Dosage: 120 MG, QD
     Route: 048
     Dates: start: 20210317, end: 20210406
  7. GIMERACIL\OTERACIL\TEGAFUR [Suspect]
     Active Substance: GIMERACIL\OTERACIL\TEGAFUR
     Dosage: 120 MILLIGRAM, QD
     Route: 048
     Dates: start: 20210407, end: 20210427
  8. GIMERACIL\OTERACIL\TEGAFUR [Suspect]
     Active Substance: GIMERACIL\OTERACIL\TEGAFUR
     Dosage: 120 MILLIGRAM, QD
     Route: 048
     Dates: start: 20210428, end: 20210518
  9. GIMERACIL\OTERACIL\TEGAFUR [Suspect]
     Active Substance: GIMERACIL\OTERACIL\TEGAFUR
     Dosage: UNK
     Route: 048
     Dates: start: 20210519
  10. OXALIPLATIN [Concomitant]
     Active Substance: OXALIPLATIN
     Indication: HER2 positive gastric cancer
     Dosage: UNK
     Dates: start: 20210317, end: 20210428
  11. CAPECITABINE [Concomitant]
     Active Substance: CAPECITABINE
     Dosage: UNK
     Dates: start: 20210714, end: 20210803
  12. ALOXI [Concomitant]
     Active Substance: PALONOSETRON HYDROCHLORIDE
     Dosage: UNK
     Dates: start: 20210317, end: 20210803
  13. DEXAMETHASONE SODIUM PHOSPHATE [Concomitant]
     Active Substance: DEXAMETHASONE SODIUM PHOSPHATE
     Indication: Prophylaxis of nausea and vomiting
     Dosage: UNK
     Dates: start: 20210317, end: 20210803
  14. APREPITANT [Concomitant]
     Active Substance: APREPITANT
     Dosage: UNK
     Dates: start: 20210317, end: 20210803
  15. CALCIUM CARBONATE\CHOLECALCIFEROL\MAGNESIUM CARBONATE [Concomitant]
     Active Substance: CALCIUM CARBONATE\CHOLECALCIFEROL\MAGNESIUM CARBONATE
     Indication: Metastases to bone
     Dosage: UNK
     Dates: end: 20210803
  16. LOXOPROFEN SODIUM DIHYDRATE [Concomitant]
     Active Substance: LOXOPROFEN SODIUM DIHYDRATE
     Indication: Inflammation
     Dosage: UNK
     Dates: end: 20210803
  17. CALONAL [Concomitant]
     Active Substance: ACETAMINOPHEN
     Indication: Headache
     Dosage: UNK
     Dates: end: 20210803

REACTIONS (4)
  - Dacryostenosis acquired [Not Recovered/Not Resolved]
  - Hypophosphataemia [Recovering/Resolving]
  - Off label use [Unknown]
  - Underdose [Unknown]

NARRATIVE: CASE EVENT DATE: 20210318
